FAERS Safety Report 8319000-4 (Version None)
Quarter: 2012Q2

REPORT INFORMATION
  Report Type: 
  Country: None (occurrence: None)
  Receive Date: 20120427
  Receipt Date: 20120423
  Transmission Date: 20120825
  Serious: Yes (Hospitalization)
  Sender: FDA-Public Use
  Company Number: US-BAYER-2012-040788

PATIENT
  Age: 38 Year
  Sex: Female
  Weight: 68 kg

DRUGS (14)
  1. DROSPIRENONE AND ETHINYL ESTRADIOL [Suspect]
  2. AMBIEN [Concomitant]
     Indication: SLEEP DISORDER
     Dosage: 5 TO10 MG Q.H.S. P.R.N.
     Route: 048
  3. NEURONTIN [Concomitant]
     Dosage: 300 MG, TID
  4. OXYCODONE HCL [Concomitant]
     Dosage: 4-6 MG DAILY
     Route: 048
  5. OXYCODONE HCL [Concomitant]
     Indication: PAIN
     Dosage: EVERY 4 TO 6 HOURS AS NEEDED; 4-6 MG DAILY
  6. YASMIN [Suspect]
  7. NEURONTIN [Concomitant]
     Indication: NEURALGIA
     Dosage: 300 MG, (DAILY AT BEDTIME)
     Route: 048
  8. RANITIDINE [Concomitant]
     Indication: GASTROOESOPHAGEAL REFLUX DISEASE
     Dosage: 150 MG DAILY AS NEEDED
     Route: 048
  9. FLUOXETINE [Concomitant]
     Indication: DEPRESSION
     Dosage: 40 MG, PRN
     Route: 048
  10. FUSH OIL [Concomitant]
     Dosage: UNK UNK, PRN
     Route: 048
  11. MULTI-VITAMIN [Concomitant]
  12. BEYAZ [Suspect]
     Indication: DYSFUNCTIONAL UTERINE BLEEDING
  13. VITAMIN D [Concomitant]
     Dosage: UNK UNK, PRN
     Route: 048
  14. ASCORBIC ACID [Concomitant]
     Dosage: UNK UNK, PRN
     Route: 048

REACTIONS (1)
  - PULMONARY EMBOLISM [None]
